FAERS Safety Report 17247818 (Version 1)
Quarter: 2020Q1

REPORT INFORMATION
  Report Type: Report from Study
  Country: US (occurrence: US)
  Receive Date: 20200108
  Receipt Date: 20200108
  Transmission Date: 20200409
  Serious: Yes (Death)
  Sender: FDA-Public Use
  Company Number: US-OTSUKA-2017_007541

PATIENT
  Age: 38 Year
  Sex: Male

DRUGS (2)
  1. BREXPIPRAZOLE [Suspect]
     Active Substance: BREXPIPRAZOLE
     Dosage: 2 MG, QD
     Route: 048
  2. BREXPIPRAZOLE [Suspect]
     Active Substance: BREXPIPRAZOLE
     Indication: MAJOR DEPRESSION
     Dosage: UNK
     Route: 065
     Dates: start: 201510

REACTIONS (7)
  - Product dose omission [Unknown]
  - Agitation [Unknown]
  - Death [Fatal]
  - Post-traumatic stress disorder [Unknown]
  - Emotional distress [Unknown]
  - Therapy cessation [Unknown]
  - Panic attack [Unknown]

NARRATIVE: CASE EVENT DATE: 201911
